FAERS Safety Report 15981381 (Version 1)
Quarter: 2019Q1

REPORT INFORMATION
  Report Type: Spontaneous
  Country: IT (occurrence: IT)
  Receive Date: 20190219
  Receipt Date: 20190219
  Transmission Date: 20190418
  Serious: Yes (Hospitalization)
  Sender: FDA-Public Use
  Company Number: PHHY2019IT037943

PATIENT
  Age: 62 Year
  Sex: Male

DRUGS (1)
  1. IMATINIB. [Suspect]
     Active Substance: IMATINIB MESYLATE
     Indication: GRAFT VERSUS HOST DISEASE IN SKIN
     Dosage: 100 MG, QD
     Route: 065

REACTIONS (8)
  - Concomitant disease aggravated [Unknown]
  - Multiple organ dysfunction syndrome [Unknown]
  - Pericardial effusion [Unknown]
  - Product use in unapproved indication [Unknown]
  - Haemodynamic instability [Unknown]
  - Confusional state [Unknown]
  - Cardiac tamponade [Unknown]
  - Lethargy [Unknown]
